FAERS Safety Report 6564007-0 (Version None)
Quarter: 2010Q1

REPORT INFORMATION
  Report Type: 
  Country: None (occurrence: None)
  Receive Date: 20100131
  Receipt Date: 20100121
  Transmission Date: 20100710
  Serious: Yes (Hospitalization, Other)
  Sender: FDA-Public Use
  Company Number: JP-JNJFOC-20100110403

PATIENT
  Sex: Male

DRUGS (9)
  1. TOPINA [Suspect]
     Indication: EPILEPSY
     Route: 048
  2. TOPINA [Suspect]
     Route: 048
  3. TOPINA [Suspect]
     Route: 048
  4. TOPINA [Suspect]
     Route: 048
  5. OSPOLOT [Suspect]
     Indication: EPILEPSY
     Route: 048
  6. EXCEGRAN [Suspect]
     Indication: EPILEPSY
     Route: 048
  7. RELENZA [Concomitant]
     Indication: DRUG USE FOR UNKNOWN INDICATION
     Route: 055
  8. TAMIFLU [Concomitant]
     Indication: INFLUENZA
     Route: 048
  9. SOLU-MEDROL [Concomitant]
     Indication: DRUG USE FOR UNKNOWN INDICATION

REACTIONS (9)
  - ABNORMAL BEHAVIOUR [None]
  - CONVULSION [None]
  - DEPRESSED LEVEL OF CONSCIOUSNESS [None]
  - DISTURBANCE IN ATTENTION [None]
  - EYE MOVEMENT DISORDER [None]
  - INCOHERENT [None]
  - INFLUENZA [None]
  - LIVER DISORDER [None]
  - PYREXIA [None]
